FAERS Safety Report 15400513 (Version 1)
Quarter: 2018Q3

REPORT INFORMATION
  Report Type: Spontaneous
  Country: GB (occurrence: GB)
  Receive Date: 20180919
  Receipt Date: 20180919
  Transmission Date: 20181010
  Serious: Yes (Other)
  Sender: FDA-Public Use
  Company Number: GB-TEVA-2018-GB-956182

PATIENT
  Age: 49 Year
  Sex: Female
  Weight: 77 kg

DRUGS (4)
  1. LEVOTHYROXINE. [Concomitant]
     Active Substance: LEVOTHYROXINE
     Dosage: 1 DOSAGE FORMS DAILY; IN THE MORNING.
     Dates: start: 20180210
  2. NITROFURANTOIN. [Concomitant]
     Active Substance: NITROFURANTOIN
     Indication: INFECTION
     Dosage: 2 DOSAGE FORMS DAILY;
     Dates: start: 20180813, end: 20180817
  3. NITROFURANTOIN. [Suspect]
     Active Substance: NITROFURANTOIN
     Dosage: 100 MG
     Route: 065
     Dates: start: 20180817
  4. CILEST [Concomitant]
     Active Substance: ETHINYL ESTRADIOL\NORGESTIMATE
     Dosage: TAKE ONE AS DIRECTED.
     Dates: start: 20180210

REACTIONS (2)
  - Muscle spasms [Recovered/Resolved]
  - Abdominal pain [Recovered/Resolved]

NARRATIVE: CASE EVENT DATE: 20180817
